FAERS Safety Report 7693244-7 (Version None)
Quarter: 2011Q3

REPORT INFORMATION
  Report Type: 
  Country: None (occurrence: None)
  Receive Date: 20110819
  Receipt Date: 20110810
  Transmission Date: 20111222
  Serious: Yes (Hospitalization)
  Sender: FDA-Public Use
  Company Number: US-JNJFOC-20110509099

PATIENT
  Sex: Male
  Weight: 41.7 kg

DRUGS (9)
  1. ANTIBIOTICS [Concomitant]
     Indication: INFLAMMATORY BOWEL DISEASE
  2. REMICADE [Suspect]
     Indication: INFLAMMATORY BOWEL DISEASE
     Route: 042
     Dates: start: 20070804, end: 20090402
  3. HUMIRA [Concomitant]
     Indication: INFLAMMATORY BOWEL DISEASE
     Dates: start: 20090417, end: 20100806
  4. THALIDOMIDE [Concomitant]
  5. CYPROHEPTADINE HCL [Concomitant]
  6. VITAMIN D [Concomitant]
  7. PREDNISONE [Concomitant]
  8. FERROUS SULFATE TAB [Concomitant]
  9. CALCIUM CARBONATE [Concomitant]

REACTIONS (1)
  - DEVICE DISLOCATION [None]
